FAERS Safety Report 19137495 (Version 2)
Quarter: 2021Q2

REPORT INFORMATION
  Report Type: Spontaneous
  Country: US (occurrence: US)
  Receive Date: 20210415
  Receipt Date: 20210429
  Transmission Date: 20210717
  Serious: No
  Sender: FDA-Public Use
  Company Number: US-GLAXOSMITHKLINE-US2021077749

PATIENT
  Age: 71 Year
  Sex: Male
  Weight: 75 kg

DRUGS (1)
  1. BENLYSTA [Suspect]
     Active Substance: BELIMUMAB
     Indication: SYSTEMIC LUPUS ERYTHEMATOSUS
     Dosage: 800 MG, WE
     Route: 042
     Dates: start: 201911

REACTIONS (1)
  - Therapeutic response shortened [Unknown]

NARRATIVE: CASE EVENT DATE: 20210406
